FAERS Safety Report 10229190 (Version 1)
Quarter: 2014Q2

REPORT INFORMATION
  Report Type: Spontaneous
  Country: KR (occurrence: KR)
  Receive Date: 20140611
  Receipt Date: 20140611
  Transmission Date: 20141212
  Serious: Yes (Disabling)
  Sender: FDA-Public Use
  Company Number: KR-AMGEN INC.-KORSP2013093635

PATIENT
  Age: 67 Year
  Sex: Male

DRUGS (13)
  1. NESP [Suspect]
     Indication: PRODUCT USED FOR UNKNOWN INDICATION
     Dosage: 60 MUG, 1X/WEEK
     Route: 058
     Dates: start: 20130305
  2. EPOETIN ALFA [Suspect]
     Indication: ANAEMIA
     Dosage: 10000 IU, 3X/WEEK
     Route: 058
     Dates: end: 20130305
  3. MYREPT [Concomitant]
     Dosage: 500 MG, Q12HRS
     Route: 065
  4. SOLONDO [Concomitant]
     Dosage: 10 MG, QD
     Route: 065
  5. ULCERMIN                           /00434701/ [Concomitant]
     Dosage: 1MG/15ML SUS 1PKG, QID
     Route: 065
  6. OMED [Concomitant]
     Dosage: 20 MG, QD
     Route: 048
  7. SEPTRIN [Concomitant]
     Dosage: 960 MG, 2X/WEEK
     Route: 048
  8. ASTRIX [Concomitant]
     Dosage: 1 DF, QD
     Route: 048
  9. URSA [Concomitant]
     Dosage: 1 DF, TID
     Route: 048
  10. FEROBA [Concomitant]
     Dosage: 1 DF, BID
     Route: 048
  11. NYSTATIN [Concomitant]
     Dosage: 5 ML, QID
     Route: 065
  12. HEXAMEDINE [Concomitant]
     Dosage: 5 ML, BID
     Route: 048
  13. PROGRAF [Concomitant]
     Dosage: 1MG - 1.5MG, BID

REACTIONS (1)
  - Aplasia pure red cell [Unknown]
